FAERS Safety Report 12689002 (Version 4)
Quarter: 2016Q3

REPORT INFORMATION
  Report Type: Spontaneous
  Country: JP (occurrence: JP)
  Receive Date: 20160825
  Receipt Date: 20160928
  Transmission Date: 20161109
  Serious: Yes (Hospitalization, Disabling, Other)
  Sender: FDA-Public Use
  Company Number: JP-ASTRAZENECA-2016SE90451

PATIENT
  Age: 16186 Day
  Sex: Male
  Weight: 122 kg

DRUGS (5)
  1. KIPRES [Concomitant]
     Active Substance: MONTELUKAST SODIUM
     Indication: ASTHMA
     Route: 048
     Dates: start: 20150601
  2. ADOAIR [Concomitant]
     Active Substance: FLUTICASONE PROPIONATE\SALMETEROL XINAFOATE
     Indication: ASTHMA
     Route: 055
     Dates: start: 20150601
  3. FEBURIC [Concomitant]
     Active Substance: FEBUXOSTAT
     Indication: GOUT
     Route: 048
     Dates: start: 20150708
  4. FORXIGA [Suspect]
     Active Substance: DAPAGLIFLOZIN
     Indication: TYPE 2 DIABETES MELLITUS
     Route: 048
     Dates: start: 20160518, end: 20160831
  5. EQUMET [Concomitant]
     Active Substance: METFORMIN HYDROCHLORIDE\VILDAGLIPTIN
     Indication: TYPE 2 DIABETES MELLITUS
     Dosage: V50MG + M500MG, HIGH DOSE
     Route: 048
     Dates: start: 20160210

REACTIONS (3)
  - Myocardial infarction [Recovered/Resolved with Sequelae]
  - Dehydration [Recovering/Resolving]
  - Brain stem infarction [Recovered/Resolved with Sequelae]

NARRATIVE: CASE EVENT DATE: 20160814
